FAERS Safety Report 5061447-6 (Version None)
Quarter: 2006Q3

REPORT INFORMATION
  Report Type: 
  Country: None (occurrence: None)
  Receive Date: 20060721
  Receipt Date: 20060703
  Transmission Date: 20061208
  Serious: Yes (Hospitalization)
  Sender: FDA-Public Use
  Company Number: 2006-145229-NL

PATIENT
  Sex: Female

DRUGS (1)
  1. NUVARING [Suspect]
     Dosage: VAGINAL
     Route: 067
     Dates: start: 20030801

REACTIONS (2)
  - DEEP VEIN THROMBOSIS [None]
  - THROMBOSIS [None]
